FAERS Safety Report 6129297-7 (Version None)
Quarter: 2009Q1

REPORT INFORMATION
  Report Type: 
  Country: None (occurrence: None)
  Receive Date: 20090320
  Receipt Date: 20090310
  Transmission Date: 20090719
  Serious: Yes (Hospitalization)
  Sender: FDA-Public Use
  Company Number: 2009-192962-NL

PATIENT
  Age: 53 Year
  Sex: Female

DRUGS (2)
  1. MIRTAZAPINE [Suspect]
     Indication: ANXIETY
     Dosage: 75 MG
  2. MIRTAZAPINE [Suspect]
     Indication: PANIC DISORDER
     Dosage: 75 MG

REACTIONS (1)
  - ELECTROCARDIOGRAM QT PROLONGED [None]
